FAERS Safety Report 9454379 (Version 1)
Quarter: 2013Q3

REPORT INFORMATION
  Report Type: Spontaneous
  Country: PR (occurrence: PR)
  Receive Date: 20130812
  Receipt Date: 20130812
  Transmission Date: 20140515
  Serious: No
  Sender: FDA-Public Use
  Company Number: PR-BAXTER-2013BAX017721

PATIENT
  Age: 78 Year
  Sex: Male

DRUGS (1)
  1. TRAVASOL [Suspect]
     Indication: PARENTERAL NUTRITION
     Dates: start: 20130430, end: 20130509

REACTIONS (2)
  - Wrong drug administered [Recovered/Resolved]
  - No adverse event [Recovered/Resolved]
